FAERS Safety Report 9444814 (Version 1)
Quarter: 2013Q3

REPORT INFORMATION
  Report Type: Spontaneous
  Country: US (occurrence: US)
  Receive Date: 20130807
  Receipt Date: 20130807
  Transmission Date: 20140515
  Serious: No
  Sender: FDA-Public Use
  Company Number: US-TEVA-415144USA

PATIENT
  Age: 30 Year
  Sex: Female
  Weight: 107.14 kg

DRUGS (2)
  1. PARAGARD 380A [Suspect]
     Indication: CONTRACEPTION
     Route: 015
     Dates: start: 20101117
  2. ALLERGY MEDICATION NOS [Concomitant]

REACTIONS (2)
  - Device expulsion [Not Recovered/Not Resolved]
  - Trichomoniasis [Unknown]
